FAERS Safety Report 7220173-5 (Version None)
Quarter: 2011Q1

REPORT INFORMATION
  Report Type: 
  Country: None (occurrence: None)
  Receive Date: 20110111
  Receipt Date: 20110103
  Transmission Date: 20110831
  Serious: Yes (Other)
  Sender: FDA-Public Use
  Company Number: FR-GENZYME-POMP-1001159

PATIENT
  Sex: Female

DRUGS (1)
  1. MYOZYME [Suspect]
     Indication: GLYCOGEN STORAGE DISEASE TYPE II
     Dosage: 20 MG/KG, UNK
     Route: 042
     Dates: start: 20070523

REACTIONS (6)
  - MYOPIA [None]
  - DEAFNESS NEUROSENSORY [None]
  - DEMYELINATION [None]
  - FALL [None]
  - MYOPATHY [None]
  - DYSARTHRIA [None]
